FAERS Safety Report 9791401 (Version 3)
Quarter: 2014Q1

REPORT INFORMATION
  Report Type: Report from Study
  Country: BR (occurrence: BR)
  Receive Date: 20140101
  Receipt Date: 20140109
  Transmission Date: 20141002
  Serious: Yes (Life-Threatening, Hospitalization)
  Sender: FDA-Public Use
  Company Number: PHHO2013BR001331

PATIENT
  Age: 63 Year
  Sex: Female
  Weight: 79 kg

DRUGS (2)
  1. SOM230 [Suspect]
     Indication: ACROMEGALY
     Dosage: 60 MG, UNK
     Route: 030
     Dates: start: 20120322, end: 20130611
  2. SANDOSTATIN LAR [Suspect]
     Indication: ACROMEGALY
     Dosage: 30 MG, UNK
     Dates: start: 200909, end: 20120217

REACTIONS (2)
  - Liver abscess [Recovered/Resolved with Sequelae]
  - Duodenal polyp [Recovering/Resolving]
